FAERS Safety Report 5569524-8 (Version None)
Quarter: 2007Q4

REPORT INFORMATION
  Report Type: 
  Country: None (occurrence: None)
  Receive Date: 20071220
  Receipt Date: 20071211
  Transmission Date: 20080405
  Serious: Yes (Life-Threatening, Hospitalization, Other)
  Sender: FDA-Public Use
  Company Number: GB-PURDUE-GBR_2007_0003542

PATIENT
  Age: 49 Year
  Sex: Male

DRUGS (2)
  1. TRAMADOL HCL CR TABLET [Suspect]
     Indication: PAIN
     Dosage: 100 MG, UNK
     Route: 048
  2. MORPHINE SULFATE [Suspect]
     Indication: PAIN
     Dosage: 30 MG, UNK
     Route: 065

REACTIONS (3)
  - GENERALISED ERYTHEMA [None]
  - GRAND MAL CONVULSION [None]
  - SEROTONIN SYNDROME [None]
